FAERS Safety Report 9280908 (Version 5)
Quarter: 2013Q4

REPORT INFORMATION
  Report Type: Spontaneous
  Country: US (occurrence: US)
  Receive Date: 20130509
  Receipt Date: 20131105
  Transmission Date: 20140711
  Serious: Yes (Hospitalization, Disabling, Other)
  Sender: FDA-Public Use
  Company Number: US-009507513-1305USA002388

PATIENT
  Sex: Female
  Weight: 74.83 kg

DRUGS (4)
  1. FOSAMAX [Suspect]
     Indication: OSTEOPOROSIS PROPHYLAXIS
     Dosage: 70 MG, UNK
     Route: 048
  2. FOSAMAX [Suspect]
     Dosage: 70 MG, QW
     Route: 048
     Dates: start: 20050613
  3. ALENDRONATE SODIUM [Suspect]
     Indication: OSTEOPOROSIS PROPHYLAXIS
     Dosage: 70 MG, UNK
     Dates: end: 2005
  4. ALENDRONATE SODIUM [Suspect]
     Dosage: 70 MG, QW
     Route: 048
     Dates: start: 20080310, end: 20090105

REACTIONS (46)
  - Femur fracture [Recovering/Resolving]
  - Intramedullary rod insertion [Not Recovered/Not Resolved]
  - Post procedural complication [Not Recovered/Not Resolved]
  - Knee arthroplasty [Unknown]
  - Femur fracture [Unknown]
  - Femur fracture [Not Recovered/Not Resolved]
  - Intramedullary rod insertion [Not Recovered/Not Resolved]
  - Fracture nonunion [Unknown]
  - Depression [Unknown]
  - Anxiety [Unknown]
  - Polymyalgia rheumatica [Unknown]
  - Fall [Unknown]
  - Fall [Unknown]
  - Limb injury [Unknown]
  - Osteoarthritis [Unknown]
  - Bursitis [Unknown]
  - Limb injury [Unknown]
  - Dyspnoea exertional [Unknown]
  - Hypertension [Unknown]
  - Hypercholesterolaemia [Unknown]
  - Osteoporosis [Unknown]
  - Hypokalaemia [Unknown]
  - Myocardial ischaemia [Unknown]
  - Spinal osteoarthritis [Unknown]
  - Osteopenia [Unknown]
  - Pelvi-ureteric obstruction [Unknown]
  - Kyphosis [Unknown]
  - Scoliosis [Unknown]
  - Osteoarthritis [Unknown]
  - Fall [Unknown]
  - Pain [Unknown]
  - Urinary tract infection [Unknown]
  - Arthritis [Unknown]
  - Vertebral foraminal stenosis [Unknown]
  - Compression fracture [Unknown]
  - Oesophageal motility disorder [Unknown]
  - Intervertebral disc degeneration [Unknown]
  - Vascular calcification [Unknown]
  - Hiatus hernia [Unknown]
  - Arteriosclerosis [Unknown]
  - Spinal osteoarthritis [Unknown]
  - Polyarthritis [Unknown]
  - Back pain [Unknown]
  - Oedema peripheral [Unknown]
  - Muscle spasms [Unknown]
  - Gastrooesophageal reflux disease [Unknown]
